FAERS Safety Report 5858631-8 (Version None)
Quarter: 2008Q3

REPORT INFORMATION
  Report Type: 
  Country: None (occurrence: None)
  Receive Date: 20080818
  Receipt Date: 20080709
  Transmission Date: 20090109
  Serious: No
  Sender: FDA-Public Use
  Company Number: WAES 0807USA01678

PATIENT
  Age: 29 Year
  Sex: Male

DRUGS (8)
  1. JANUVIA [Suspect]
     Indication: TYPE 2 DIABETES MELLITUS
     Dosage: DAILY/PO
     Route: 048
     Dates: start: 20080625
  2. DUETACT [Concomitant]
  3. RIOMET [Concomitant]
  4. RISPERDAL [Concomitant]
  5. TRICOR [Concomitant]
  6. CARBAMAZEPINE [Concomitant]
  7. LISINOPRIL [Concomitant]
  8. VALPROIC ACID [Concomitant]

REACTIONS (5)
  - ABNORMAL BEHAVIOUR [None]
  - AGITATION [None]
  - FATIGUE [None]
  - MOOD ALTERED [None]
  - WRONG TECHNIQUE IN DRUG USAGE PROCESS [None]
